FAERS Safety Report 8596524-6 (Version None)
Quarter: 2012Q3

REPORT INFORMATION
  Report Type: 
  Country: None (occurrence: None)
  Receive Date: 20120815
  Receipt Date: 20120802
  Transmission Date: 20120928
  Serious: No
  Sender: FDA-Public Use
  Company Number: US-ASTRAZENECA-2012SE28485

PATIENT
  Age: 45 Year
  Sex: Female

DRUGS (2)
  1. SYMBICORT [Suspect]
     Dosage: 80/4.5 MCG UNKNOWN FREQUENCY
     Route: 055
  2. SYMBICORT [Suspect]
     Dosage: 160/4.5 MCG UNKNOWN FREQUENCY
     Route: 055

REACTIONS (5)
  - INTERCEPTED DRUG DISPENSING ERROR [None]
  - SEASONAL ALLERGY [None]
  - NASAL CONGESTION [None]
  - THROAT TIGHTNESS [None]
  - COUGH [None]
